FAERS Safety Report 9185617 (Version 1)
Quarter: 2012Q4

REPORT INFORMATION
  Report Type: Report from Study
  Country: US (occurrence: US)
  Receive Date: 20121031
  Receipt Date: 20121031
  Transmission Date: 20130627
  Serious: Yes (Hospitalization)
  Sender: FDA-Public Use
  Company Number: US-JNJFOC-20121016071

PATIENT
  Age: 13 None
  Sex: Male
  Weight: 36.8 kg

DRUGS (11)
  1. REMICADE [Suspect]
     Indication: INFLAMMATORY BOWEL DISEASE
     Route: 042
     Dates: start: 20110923
  2. ZYRTEC [Concomitant]
  3. PSEUDOEPHEDRINE [Concomitant]
  4. LACTAID [Concomitant]
  5. PATANOL [Concomitant]
  6. MULTIVITAMINS [Concomitant]
  7. CALCIUM CITRATE [Concomitant]
  8. MIRALAX [Concomitant]
  9. COLACE [Concomitant]
  10. CLARITIN [Concomitant]
  11. HYDROCORTISONE [Concomitant]

REACTIONS (2)
  - Anal fistula [Recovered/Resolved]
  - Proctitis [Recovered/Resolved]
